FAERS Safety Report 7982257-3 (Version None)
Quarter: 2011Q4

REPORT INFORMATION
  Report Type: 
  Country: None (occurrence: None)
  Receive Date: 20111215
  Receipt Date: 20111215
  Transmission Date: 20120403
  Serious: Yes (Hospitalization)
  Sender: FDA-Public Use
  Company Number: None

PATIENT
  Age: 86 Year
  Sex: Male
  Weight: 63.049 kg

DRUGS (1)
  1. PACERONE [Suspect]
     Indication: ATRIAL FIBRILLATION
     Dosage: ONE HALF TAB
     Route: 048
     Dates: start: 20000101, end: 20111214

REACTIONS (3)
  - MEMORY IMPAIRMENT [None]
  - QUALITY OF LIFE DECREASED [None]
  - SPEECH DISORDER [None]
